FAERS Safety Report 8339779-5 (Version None)
Quarter: 2012Q2

REPORT INFORMATION
  Report Type: 
  Country: None (occurrence: None)
  Receive Date: 20120507
  Receipt Date: 20120430
  Transmission Date: 20120825
  Serious: Yes (Life-Threatening, Hospitalization)
  Sender: FDA-Public Use
  Company Number: CA-TEVA-336493USA

PATIENT
  Age: 55 Year
  Sex: Female
  Weight: 113 kg

DRUGS (20)
  1. CALCIUM [Concomitant]
  2. LAMOTRIGINE [Concomitant]
  3. PANTOPRAZOLE [Concomitant]
     Dosage: TABLET (EXTENDED-RELEASE)
  4. DICLOFENAC SODIUM [Concomitant]
     Route: 061
  5. ATENOLOL [Concomitant]
     Indication: BLOOD PRESSURE
  6. ZOPICLONE [Concomitant]
  7. OXYCODONE HCL [Concomitant]
  8. CITALOPRAM HYDROBROMIDE [Concomitant]
  9. QUETIAPINE [Concomitant]
  10. ATORVASTATIN CALCIUM [Concomitant]
  11. CALCITONIN SALMON [Concomitant]
  12. FUROSEMIDE [Concomitant]
  13. LORAZEPAM [Concomitant]
  14. OXYCODONE HCL [Concomitant]
     Dosage: TABLET (EXTENDED-RELEASE)
  15. ALFACALCIDOL [Concomitant]
  16. RHINARIS [Concomitant]
  17. LEVOTHYROXINE SODIUM [Concomitant]
  18. LAMOTRIGINE [Suspect]
     Dosage: 25 MILLIGRAM;
     Route: 048
  19. GLYBURIDE [Concomitant]
  20. QUETIAPINE [Concomitant]
     Dosage: TABLET (EXTENDED-RELEASE)

REACTIONS (2)
  - BLOOD CREATININE INCREASED [None]
  - TUBULOINTERSTITIAL NEPHRITIS [None]
